FAERS Safety Report 15423549 (Version 1)
Quarter: 2018Q3

REPORT INFORMATION
  Report Type: Spontaneous
  Country: US (occurrence: US)
  Receive Date: 20180920
  Receipt Date: 20180920
  Transmission Date: 20181010
  Serious: No
  Sender: FDA-Public Use
  Company Number: None

PATIENT
  Age: 40 Year
  Sex: Female
  Weight: 66.15 kg

DRUGS (2)
  1. GLATIRAMER ACETATE 40 MG SQ THREE TIMES WEEKLY [Concomitant]
     Active Substance: GLATIRAMER ACETATE
     Route: 058
     Dates: start: 20180802
  2. GLATIRAMER ACETATE. [Suspect]
     Active Substance: GLATIRAMER ACETATE
     Indication: MULTIPLE SCLEROSIS
     Route: 058
     Dates: start: 20180802, end: 20180919

REACTIONS (2)
  - Pruritus generalised [None]
  - Skin burning sensation [None]

NARRATIVE: CASE EVENT DATE: 20180915
